FAERS Safety Report 20760807 (Version 1)
Quarter: 2022Q2

REPORT INFORMATION
  Report Type: Spontaneous
  Country: US (occurrence: US)
  Receive Date: 20220428
  Receipt Date: 20220428
  Transmission Date: 20220721
  Serious: No
  Sender: FDA-Public Use
  Company Number: US-TEVA-2022-US-2023549

PATIENT
  Sex: Female

DRUGS (1)
  1. CRYSELLE [Suspect]
     Active Substance: ETHINYL ESTRADIOL\NORGESTREL
     Indication: Contraception
     Dosage: FORM STRENGTH: 0.3-0.03 MG-MG
     Route: 065
     Dates: start: 2022

REACTIONS (3)
  - Menstruation irregular [Not Recovered/Not Resolved]
  - Night sweats [Not Recovered/Not Resolved]
  - Hyperhidrosis [Not Recovered/Not Resolved]

NARRATIVE: CASE EVENT DATE: 20220301
